FAERS Safety Report 9908821 (Version 2)
Quarter: 2014Q1

REPORT INFORMATION
  Report Type: Spontaneous
  Country: US (occurrence: US)
  Receive Date: 20140219
  Receipt Date: 20140307
  Transmission Date: 20141002
  Serious: Yes (Hospitalization, Other)
  Sender: FDA-Public Use
  Company Number: US-009507513-1402USA006995

PATIENT
  Age: 60 Year
  Sex: Female

DRUGS (7)
  1. TEMODAR [Suspect]
     Indication: GLIOBLASTOMA MULTIFORME
     Dosage: UNK
     Route: 048
     Dates: start: 201309, end: 20140205
  2. TEMODAR [Suspect]
     Dosage: 280 MG, QD
     Route: 048
     Dates: start: 20140206, end: 20140207
  3. TEMODAR [Suspect]
     Dosage: UNK
     Route: 048
     Dates: start: 20140212
  4. SYNTHROID [Concomitant]
     Dosage: UNK
  5. FAMOTIDINE [Concomitant]
     Dosage: UNK
  6. BACTRIM [Concomitant]
     Dosage: UNK
  7. ZOFRAN [Concomitant]
     Dosage: UNK

REACTIONS (6)
  - Urticaria [Recovered/Resolved]
  - Paraesthesia oral [Recovered/Resolved]
  - Pruritus [Recovered/Resolved]
  - Urticaria [Recovering/Resolving]
  - Paraesthesia oral [Recovered/Resolved]
  - Pruritus [Recovered/Resolved]
